FAERS Safety Report 24063875 (Version 1)
Quarter: 2024Q3

REPORT INFORMATION
  Report Type: Spontaneous
  Country: US (occurrence: US)
  Receive Date: 20240709
  Receipt Date: 20240709
  Transmission Date: 20241017
  Serious: No
  Sender: ABBVIE
  Company Number: US-ABBVIE-5831582

PATIENT
  Sex: Female

DRUGS (2)
  1. BOTOX [Suspect]
     Active Substance: ONABOTULINUMTOXINA
     Indication: Skin wrinkling
     Dosage: TIME INTERVAL: AS NECESSARY: STRENGTH: 400 INTERNATIONAL UNIT
     Route: 065
     Dates: start: 20230408, end: 20230408
  2. BOTOX [Suspect]
     Active Substance: ONABOTULINUMTOXINA
     Indication: Skin wrinkling
     Dosage: TIME INTERVAL: AS NECESSARY: STRENGTH: 400 INTERNATIONAL UNIT
     Route: 065
     Dates: start: 20230408, end: 20230408

REACTIONS (4)
  - Injection site papule [Not Recovered/Not Resolved]
  - Drug ineffective [Unknown]
  - Injection site nodule [Not Recovered/Not Resolved]
  - Adverse drug reaction [Unknown]

NARRATIVE: CASE EVENT DATE: 20230101
